FAERS Safety Report 9474027 (Version 1)
Quarter: 2013Q3

REPORT INFORMATION
  Report Type: Spontaneous
  Country: US (occurrence: US)
  Receive Date: 20130823
  Receipt Date: 20130823
  Transmission Date: 20140515
  Serious: No
  Sender: FDA-Public Use
  Company Number: US-009507513-1308USA009147

PATIENT
  Age: 26 Year
  Sex: Male

DRUGS (9)
  1. JANUVIA [Suspect]
     Indication: TYPE 2 DIABETES MELLITUS
     Dosage: 100 MG, QD
     Route: 048
     Dates: start: 20130813, end: 20130813
  2. ZOCOR [Concomitant]
  3. ADDERALL TABLETS [Concomitant]
  4. DEPAKOTE [Concomitant]
  5. WELLBUTRIN [Concomitant]
  6. RISPERDAL [Concomitant]
  7. ZOLOFT [Concomitant]
  8. KLONOPIN [Concomitant]
  9. FLEXERIL [Concomitant]

REACTIONS (2)
  - Abdominal pain [Unknown]
  - Vomiting [Unknown]
